FAERS Safety Report 8014716-1 (Version None)
Quarter: 2011Q4

REPORT INFORMATION
  Report Type: 
  Country: None (occurrence: None)
  Receive Date: 20111229
  Receipt Date: 20111222
  Transmission Date: 20120403
  Serious: Yes (Hospitalization)
  Sender: FDA-Public Use
  Company Number: CA-ABBOTT-11P-028-0884569-00

PATIENT
  Sex: Male
  Weight: 59.474 kg

DRUGS (3)
  1. HUMIRA [Suspect]
     Indication: FISTULA
     Route: 058
     Dates: start: 20111108, end: 20111129
  2. HUMIRA [Suspect]
     Indication: CROHN'S DISEASE
  3. ACETAMINOPHEN [Concomitant]
     Indication: HEADACHE
     Route: 048

REACTIONS (5)
  - PURULENCE [None]
  - ABDOMINAL PAIN [None]
  - CELLULITIS [None]
  - INFECTION [None]
  - GASTROINTESTINAL INFLAMMATION [None]
